FAERS Safety Report 15073977 (Version 1)
Quarter: 2018Q2

REPORT INFORMATION
  Report Type: Spontaneous
  Country: US (occurrence: US)
  Receive Date: 20180627
  Receipt Date: 20180627
  Transmission Date: 20180711
  Serious: No
  Sender: FDA-Public Use
  Company Number: US-TEVA-2018-US-915429

PATIENT
  Age: 1 Year
  Sex: Male

DRUGS (1)
  1. QVAR [Suspect]
     Active Substance: BECLOMETHASONE DIPROPIONATE
     Dosage: 1 DROP IN THE MORNING AND ONE AT NIGHT

REACTIONS (2)
  - Drug administered to patient of inappropriate age [Unknown]
  - Intercepted medication error [Unknown]
